FAERS Safety Report 25524821 (Version 1)
Quarter: 2025Q3

REPORT INFORMATION
  Report Type: Spontaneous
  Country: US (occurrence: US)
  Receive Date: 20250707
  Receipt Date: 20250707
  Transmission Date: 20251021
  Serious: Yes (Death, Other)
  Sender: MYLAN
  Company Number: US-MYLANLABS-2025M1055523

PATIENT
  Age: 52 Year
  Sex: Male

DRUGS (3)
  1. FENTANYL [Suspect]
     Active Substance: FENTANYL
     Indication: Product used for unknown indication
  2. OXYCODONE [Suspect]
     Active Substance: OXYCODONE
     Indication: Product used for unknown indication
  3. .DELTA.9-TETRAHYDROCANNABINOL\HERBALS [Suspect]
     Active Substance: .DELTA.9-TETRAHYDROCANNABINOL\HERBALS
     Indication: Product used for unknown indication

REACTIONS (10)
  - Cardiac arrest [Fatal]
  - Toxicity to various agents [Fatal]
  - Arrhythmia [Fatal]
  - Agonal respiration [Unknown]
  - Dyspnoea [Unknown]
  - Pain in extremity [Unknown]
  - Thirst [Unknown]
  - Skin warm [Unknown]
  - Mydriasis [Unknown]
  - Hyperhidrosis [Unknown]
